FAERS Safety Report 5283585-5 (Version None)
Quarter: 2007Q2

REPORT INFORMATION
  Report Type: 
  Country: None (occurrence: None)
  Receive Date: 20070402
  Receipt Date: 20070319
  Transmission Date: 20071010
  Serious: Yes (Hospitalization)
  Sender: FDA-Public Use
  Company Number: US-ROCHE-488898

PATIENT
  Age: 43 Year
  Sex: Male
  Weight: 81 kg

DRUGS (2)
  1. PEG-INTERFERON A-2A (RO 25-8310) [Suspect]
     Route: 058
     Dates: start: 20051021, end: 20060921
  2. RIBAVIRIN [Suspect]
     Route: 048
     Dates: start: 20051021, end: 20060921

REACTIONS (1)
  - HAEMORRHOIDAL HAEMORRHAGE [None]
